FAERS Safety Report 17515983 (Version 1)
Quarter: 2020Q1

REPORT INFORMATION
  Report Type: Spontaneous
  Country: DE (occurrence: DE)
  Receive Date: 20200309
  Receipt Date: 20200309
  Transmission Date: 20200409
  Serious: Yes (Hospitalization, Other)
  Sender: FDA-Public Use
  Company Number: DE-PFIZER INC-2020097425

PATIENT
  Sex: Female

DRUGS (1)
  1. CYTOTEC [Suspect]
     Active Substance: MISOPROSTOL
     Indication: LABOUR INDUCTION
     Dosage: 1.5 DF, SINGLE (1 1/2 TABLETS)
     Route: 064
     Dates: start: 20180920, end: 20180921

REACTIONS (3)
  - Foetal heart rate decreased [Recovered/Resolved]
  - Foetal exposure during delivery [Unknown]
  - Loss of consciousness [Recovered/Resolved]
